FAERS Safety Report 4367063-3 (Version None)
Quarter: 2004Q2

REPORT INFORMATION
  Report Type: 
  Country: None (occurrence: None)
  Receive Date: 20040524
  Receipt Date: 20040510
  Transmission Date: 20050107
  Serious: Yes (Hospitalization, Other)
  Sender: FDA-Public Use
  Company Number: FEI2004-0433

PATIENT
  Age: 28 Year
  Sex: Female
  Weight: 56.6996 kg

DRUGS (1)
  1. PARAGARD T380A (INTRAUTERINE CONTRACEPTIVES) (UTERINE) [Suspect]
     Indication: CONTRACEPTION
     Dosage: INTRA-UTERINE
     Route: 015
     Dates: end: 20040501

REACTIONS (10)
  - CONDITION AGGRAVATED [None]
  - ENDOMETRIOSIS [None]
  - HAEMATOCRIT DECREASED [None]
  - IMPAIRED HEALING [None]
  - IUCD COMPLICATION [None]
  - METRORRHAGIA [None]
  - NAUSEA [None]
  - PELVIC INFLAMMATORY DISEASE [None]
  - PELVIC PAIN [None]
  - POST COITAL BLEEDING [None]
